FAERS Safety Report 15336139 (Version 1)
Quarter: 2018Q3

REPORT INFORMATION
  Report Type: Spontaneous
  Country: CA (occurrence: CA)
  Receive Date: 20180830
  Receipt Date: 20180830
  Transmission Date: 20181010
  Serious: Yes (Congenital Anomaly, Other)
  Sender: FDA-Public Use
  Company Number: CA-EISAI MEDICAL RESEARCH-EC-2018-044546

PATIENT
  Age: 58 Year
  Sex: Male

DRUGS (7)
  1. DEXILANT [Suspect]
     Active Substance: DEXLANSOPRAZOLE
     Indication: OCCUPATIONAL EXPOSURE TO PRODUCT
     Dosage: UNKNOWN
     Route: 003
  2. LANSOPRAZOLE. [Concomitant]
     Active Substance: LANSOPRAZOLE
     Indication: OCCUPATIONAL EXPOSURE TO PRODUCT
     Dosage: UNKNOWN
     Route: 003
  3. PANTOPRAZOLE [Suspect]
     Active Substance: PANTOPRAZOLE
     Indication: OCCUPATIONAL EXPOSURE TO PRODUCT
     Dosage: UNKNOWN
     Route: 003
  4. ILAPRAZOLE [Suspect]
     Active Substance: ILAPRAZOLE
     Indication: OCCUPATIONAL EXPOSURE TO PRODUCT
     Dosage: UNKNOWN
     Route: 003
  5. OMEPRAZOLE MAGNESIUM. [Suspect]
     Active Substance: OMEPRAZOLE MAGNESIUM
     Indication: OCCUPATIONAL EXPOSURE TO PRODUCT
     Dosage: UNKNOWN
     Route: 003
  6. RABEPRAZOLE [Suspect]
     Active Substance: RABEPRAZOLE
     Indication: OCCUPATIONAL EXPOSURE TO PRODUCT
     Dosage: UNKNOWN
     Route: 003
  7. ESOMEPRAZOLE MAGNESIUM TRIHYDRATE [Suspect]
     Active Substance: ESOMEPRAZOLE MAGNESIUM
     Indication: OCCUPATIONAL EXPOSURE TO PRODUCT
     Dosage: UNKNOWN
     Route: 003

REACTIONS (5)
  - Oedema [Not Recovered/Not Resolved]
  - Occupational exposure to product [Not Recovered/Not Resolved]
  - Occupational dermatitis [Not Recovered/Not Resolved]
  - Rash erythematous [Not Recovered/Not Resolved]
  - Erythema of eyelid [Not Recovered/Not Resolved]
